FAERS Safety Report 13977098 (Version 1)
Quarter: 2017Q3

REPORT INFORMATION
  Report Type: Spontaneous
  Country: US (occurrence: US)
  Receive Date: 20170915
  Receipt Date: 20170915
  Transmission Date: 20171128
  Serious: Yes (Hospitalization, Other)
  Sender: FDA-Public Use
  Company Number: US-CONCORDIA PHARMACEUTICALS INC.-E2B_00008373

PATIENT
  Age: 28 Year
  Sex: Male

DRUGS (8)
  1. METHYLPREDNISOLONE. [Suspect]
     Active Substance: METHYLPREDNISOLONE
     Indication: SUBACUTE CUTANEOUS LUPUS ERYTHEMATOSUS
     Route: 042
  2. AZATHIOPRINE. [Concomitant]
     Active Substance: AZATHIOPRINE
  3. PREDNISOLONE. [Suspect]
     Active Substance: PREDNISOLONE
     Indication: SUBACUTE CUTANEOUS LUPUS ERYTHEMATOSUS
     Route: 048
  4. AZATHIOPRINE. [Concomitant]
     Active Substance: AZATHIOPRINE
  5. PREDNISOLONE. [Suspect]
     Active Substance: PREDNISOLONE
     Indication: NECROTISING MYOSITIS
     Route: 048
  6. METHYLPREDNISOLONE. [Suspect]
     Active Substance: METHYLPREDNISOLONE
     Indication: NECROTISING MYOSITIS
     Route: 042
  7. AZATHIOPRINE. [Concomitant]
     Active Substance: AZATHIOPRINE
     Indication: NECROTISING MYOSITIS
  8. AZATHIOPRINE. [Concomitant]
     Active Substance: AZATHIOPRINE
     Indication: SUBACUTE CUTANEOUS LUPUS ERYTHEMATOSUS

REACTIONS (1)
  - Psychotic disorder [Recovered/Resolved]
